FAERS Safety Report 13374728 (Version 1)
Quarter: 2017Q1

REPORT INFORMATION
  Report Type: Spontaneous
  Country: US (occurrence: US)
  Receive Date: 20170327
  Receipt Date: 20170327
  Transmission Date: 20170429
  Serious: Yes (Other)
  Sender: FDA-Public Use
  Company Number: US-BAYER-2017-050563

PATIENT
  Age: 44 Year
  Sex: Female

DRUGS (1)
  1. CLIMARA PRO [Suspect]
     Active Substance: ESTRADIOL\LEVONORGESTREL
     Dosage: UNK
     Route: 062
     Dates: start: 201703

REACTIONS (6)
  - Fatigue [None]
  - Premenstrual syndrome [None]
  - Headache [None]
  - Product adhesion issue [None]
  - Uterine haemorrhage [None]
  - Abdominal pain [None]

NARRATIVE: CASE EVENT DATE: 201703
